FAERS Safety Report 16215072 (Version 2)
Quarter: 2019Q2

REPORT INFORMATION
  Report Type: Spontaneous
  Country: US (occurrence: US)
  Receive Date: 20190419
  Receipt Date: 20190612
  Transmission Date: 20190711
  Serious: Yes (Other)
  Sender: FDA-Public Use
  Company Number: US-SUN PHARMACEUTICAL INDUSTRIES LTD-2019R1-200806

PATIENT
  Age: 53 Year
  Sex: Male

DRUGS (9)
  1. METHOTREXATE. [Suspect]
     Active Substance: METHOTREXATE
     Indication: PSORIASIS
     Dosage: 30 MILLIGRAM, WEEKLY
     Route: 065
  2. ALPRAZOLAM. [Concomitant]
     Active Substance: ALPRAZOLAM
     Indication: ANXIETY
     Dosage: 3 MG
     Route: 065
  3. FOLIC ACID. [Interacting]
     Active Substance: FOLIC ACID
     Indication: PSORIASIS
     Dosage: 1 MILLIGRAM, 6 TIMES PER WEEK
     Route: 065
  4. DESONIDE. [Concomitant]
     Active Substance: DESONIDE
     Indication: PRODUCT USED FOR UNKNOWN INDICATION
     Dosage: UNK
     Route: 065
  5. BUPROPION. [Concomitant]
     Active Substance: BUPROPION
     Indication: DEPRESSION
     Dosage: 300 MILLIGRAM, DAILY
     Route: 065
  6. CALCIPOTRIENE. [Concomitant]
     Active Substance: CALCIPOTRIENE
     Indication: PRODUCT USED FOR UNKNOWN INDICATION
     Dosage: UNK
     Route: 065
  7. L-METHYLFOLATE [Interacting]
     Active Substance: LEVOMEFOLIC ACID
     Indication: DEPRESSION
     Dosage: 15 MILLIGRAM, DAILY
     Route: 065
  8. DULOXETINE ER [Concomitant]
     Indication: DEPRESSION
     Dosage: 60 MILLIGRAM, DAILY
     Route: 065
  9. DIPHENHYDRAMINE. [Concomitant]
     Active Substance: DIPHENHYDRAMINE
     Indication: SLEEP DISORDER
     Dosage: 25 TO 50 MG
     Route: 065

REACTIONS (2)
  - Psoriasis [Recovering/Resolving]
  - Drug interaction [Unknown]
